FAERS Safety Report 9381220 (Version 2)
Quarter: 2013Q3

REPORT INFORMATION
  Report Type: Spontaneous
  Country: US (occurrence: US)
  Receive Date: 20130703
  Receipt Date: 20130725
  Transmission Date: 20140515
  Serious: Yes (Other)
  Sender: FDA-Public Use
  Company Number: US-ASTRAZENECA-2013SE48940

PATIENT
  Age: 80 Year
  Sex: Male
  Weight: 65.8 kg

DRUGS (10)
  1. PULMICORT FLEXHALER [Suspect]
     Indication: COUGH
     Route: 055
     Dates: start: 201306, end: 201306
  2. CRESTOR [Suspect]
     Indication: THROMBOSIS
     Route: 048
     Dates: start: 2010
  3. TRAVATAN EYE DROPS [Concomitant]
     Indication: EYE DISORDER
     Route: 047
     Dates: start: 2008
  4. FISH OIL AND OMEGA 3 [Concomitant]
     Dosage: 1200 MG/360 MG DAILY
     Route: 048
  5. GREEN TEA W HOODIA [Concomitant]
     Indication: DIURETIC THERAPY
     Route: 048
  6. CRANBERRY FRUIT [Concomitant]
     Route: 048
  7. BILBERRY [Concomitant]
     Route: 048
  8. RANEXA [Concomitant]
     Indication: CARDIAC DISORDER
     Route: 048
  9. CORAL CALCIUM [Concomitant]
     Dosage: DAILY
     Route: 048
  10. MEGA 50 FOR MEN VITAMIN [Concomitant]
     Dosage: DAILY
     Route: 048

REACTIONS (15)
  - Glaucoma [Unknown]
  - Monoplegia [Unknown]
  - Renal colic [Unknown]
  - Herpes zoster [Unknown]
  - Adverse drug reaction [Unknown]
  - Influenza [Unknown]
  - Pyrexia [Unknown]
  - Blister [Unknown]
  - Abdominal pain upper [Unknown]
  - Burning sensation [Unknown]
  - Cough [Unknown]
  - Muscle atrophy [Unknown]
  - Pruritus [Unknown]
  - Pain in extremity [Unknown]
  - Off label use [Unknown]
